FAERS Safety Report 13642821 (Version 1)
Quarter: 2017Q2

REPORT INFORMATION
  Report Type: Spontaneous
  Country: JP (occurrence: JP)
  Receive Date: 20170612
  Receipt Date: 20170612
  Transmission Date: 20170830
  Serious: Yes (Hospitalization)
  Sender: FDA-Public Use
  Company Number: JP-BAXALTA-2017BXJ004598

PATIENT
  Age: 48 Year
  Sex: Male

DRUGS (5)
  1. ADVATE [Suspect]
     Active Substance: ANTIHEMOPHILIC FACTOR, HUMAN RECOMBINANT
     Indication: MUSCLE HAEMORRHAGE
     Dosage: 2500 IU, EVERY 12 HOURS
     Route: 042
     Dates: start: 20160820, end: 20160822
  2. ADVATE [Suspect]
     Active Substance: ANTIHEMOPHILIC FACTOR, HUMAN RECOMBINANT
     Dosage: 4000 IU, EVERY 12 HOURS
     Route: 042
     Dates: start: 20160823, end: 20160823
  3. ADVATE [Suspect]
     Active Substance: ANTIHEMOPHILIC FACTOR, HUMAN RECOMBINANT
     Dosage: UNK
     Route: 042
  4. RED BLOOD CELLS, CONCENTRATED [Concomitant]
     Active Substance: HUMAN RED BLOOD CELL
     Indication: HAEMATOMA
     Dosage: 2 U, UNK, FOR 3 DAYS
     Route: 042
  5. ADVATE [Suspect]
     Active Substance: ANTIHEMOPHILIC FACTOR, HUMAN RECOMBINANT
     Dosage: 6000 IU, EVERY 12 HOURS
     Route: 042
     Dates: start: 20160824, end: 20160824

REACTIONS (2)
  - Factor VIII inhibition [Recovering/Resolving]
  - Drug ineffective [Recovering/Resolving]
